FAERS Safety Report 26052231 (Version 1)
Quarter: 2025Q4

REPORT INFORMATION
  Report Type: Spontaneous
  Country: US (occurrence: US)
  Receive Date: 20251117
  Receipt Date: 20251117
  Transmission Date: 20260118
  Serious: Yes (Death, Hospitalization, Other)
  Sender: IPCA
  Company Number: US-IPCA LABORATORIES LIMITED-IPC-2025-US-003036

PATIENT

DRUGS (5)
  1. IBUPROFEN [Suspect]
     Active Substance: IBUPROFEN
     Indication: Product used for unknown indication
     Dosage: UNK
     Route: 065
  2. ACETAMINOPHEN [Suspect]
     Active Substance: ACETAMINOPHEN
     Indication: Product used for unknown indication
     Dosage: UNK
     Route: 065
  3. SERTRALINE [Suspect]
     Active Substance: SERTRALINE HYDROCHLORIDE
     Indication: Product used for unknown indication
     Dosage: UNK
     Route: 065
  4. HYDROXYZINE [Suspect]
     Active Substance: HYDROXYZINE HYDROCHLORIDE
     Indication: Product used for unknown indication
     Dosage: UNK
     Route: 065
  5. BUPROPION HYDROCHLORIDE [Suspect]
     Active Substance: BUPROPION HYDROCHLORIDE
     Indication: Headache
     Dosage: UNK
     Route: 065

REACTIONS (16)
  - Brain death [Fatal]
  - Seizure [Fatal]
  - Status epilepticus [Fatal]
  - Hallucination [Fatal]
  - Intracranial pressure increased [Fatal]
  - Cerebral circulatory failure [Unknown]
  - Areflexia [Fatal]
  - Brain herniation [Fatal]
  - Brain oedema [Fatal]
  - Pupil fixed [Fatal]
  - Diabetes insipidus [Fatal]
  - Mydriasis [Fatal]
  - Confusional state [Fatal]
  - Hypoxia [Fatal]
  - Vomiting [Fatal]
  - Overdose [Unknown]
